FAERS Safety Report 6773654-2 (Version None)
Quarter: 2010Q2

REPORT INFORMATION
  Report Type: 
  Country: None (occurrence: None)
  Receive Date: 20100615
  Receipt Date: 20100615
  Transmission Date: 20101027
  Serious: Yes (Other)
  Sender: FDA-Public Use
  Company Number: None

PATIENT
  Age: 22 Year
  Sex: Male
  Weight: 72.5755 kg

DRUGS (1)
  1. VIVITROL [Suspect]
     Indication: PROPHYLAXIS
     Dosage: 380 MG ONCE IM
     Route: 030

REACTIONS (1)
  - ANGIOEDEMA [None]
